FAERS Safety Report 20957183 (Version 2)
Quarter: 2022Q2

REPORT INFORMATION
  Report Type: Spontaneous
  Country: JP (occurrence: JP)
  Receive Date: 20220614
  Receipt Date: 20220623
  Transmission Date: 20220720
  Serious: Yes (Death)
  Sender: FDA-Public Use
  Company Number: JP-CHUGAI-2022009140

PATIENT
  Age: 67 Year
  Sex: Male
  Weight: 61.6 kg

DRUGS (11)
  1. ACTEMRA [Suspect]
     Active Substance: TOCILIZUMAB
     Indication: COVID-19
     Dosage: 480 MILLIGRAM, QD
     Route: 041
     Dates: start: 20210524, end: 20210525
  2. ACTEMRA [Suspect]
     Active Substance: TOCILIZUMAB
     Dosage: 480 MILLIGRAM, QD
     Route: 041
     Dates: start: 20210604, end: 20210605
  3. SOLU-MEDROL [Suspect]
     Active Substance: METHYLPREDNISOLONE SODIUM SUCCINATE
     Indication: Product used for unknown indication
     Dosage: 1000MG/DAY
     Route: 041
     Dates: start: 20210524, end: 20210526
  4. SOLU-MEDROL [Suspect]
     Active Substance: METHYLPREDNISOLONE SODIUM SUCCINATE
     Dosage: 60MG/DAY
     Route: 041
     Dates: start: 20210527, end: 20210530
  5. SOLU-MEDROL [Suspect]
     Active Substance: METHYLPREDNISOLONE SODIUM SUCCINATE
     Dosage: 1000MG/DAY
     Route: 041
     Dates: start: 20210531, end: 20210602
  6. SOLU-MEDROL [Suspect]
     Active Substance: METHYLPREDNISOLONE SODIUM SUCCINATE
     Dosage: 60MG/DAY
     Route: 041
     Dates: start: 20210603, end: 20210610
  7. SOLU-MEDROL [Suspect]
     Active Substance: METHYLPREDNISOLONE SODIUM SUCCINATE
     Dosage: 30MG/DAY
     Route: 041
     Dates: start: 20210611, end: 20210617
  8. SOLU-MEDROL [Suspect]
     Active Substance: METHYLPREDNISOLONE SODIUM SUCCINATE
     Dosage: 15MG/DAY
     Route: 041
     Dates: start: 20210618, end: 20210628
  9. OLUMIANT [Suspect]
     Active Substance: BARICITINIB
     Indication: Product used for unknown indication
     Dosage: 2 MILLIGRAM, QD
     Route: 048
     Dates: start: 20210526, end: 20210608
  10. VEKLURY [Concomitant]
     Active Substance: REMDESIVIR
     Dosage: UNK
     Route: 065
     Dates: start: 20210524, end: 20210528
  11. NAFAMOSTAT MESYLATE [Concomitant]
     Active Substance: NAFAMOSTAT MESYLATE
     Dosage: UNK
     Route: 065
     Dates: start: 20210524, end: 20210528

REACTIONS (2)
  - Pneumonia [Fatal]
  - Off label use [Unknown]

NARRATIVE: CASE EVENT DATE: 20210629
